FAERS Safety Report 10361836 (Version 1)
Quarter: 2014Q3

REPORT INFORMATION
  Report Type: Spontaneous
  Country: JP (occurrence: JP)
  Receive Date: 20140805
  Receipt Date: 20140805
  Transmission Date: 20150326
  Serious: Yes (Other)
  Sender: FDA-Public Use
  Company Number: PHHY2012JP133731

PATIENT
  Age: 50 Year
  Sex: Male

DRUGS (1)
  1. EXJADE [Suspect]
     Active Substance: DEFERASIROX
     Indication: CHRONIC MYELOID LEUKAEMIA
     Dosage: 500 MG DAILY
     Dates: start: 20110901

REACTIONS (3)
  - Haemolytic anaemia [Unknown]
  - Hepatic cirrhosis [Unknown]
  - Lymphoma [Unknown]
